FAERS Safety Report 23892682 (Version 4)
Quarter: 2024Q3

REPORT INFORMATION
  Report Type: Report from Study
  Country: US (occurrence: US)
  Receive Date: 20240524
  Receipt Date: 20240705
  Transmission Date: 20241017
  Serious: Yes (Other)
  Sender: UCB
  Company Number: US-UCBSA-2024024766

PATIENT
  Sex: Female
  Weight: 286 kg

DRUGS (5)
  1. BRIVARACETAM [Suspect]
     Active Substance: BRIVARACETAM
     Indication: Seizure
     Dosage: 100 MILLIGRAM, 2X/DAY (BID)
     Dates: start: 202403, end: 2024
  2. BRIVARACETAM [Suspect]
     Active Substance: BRIVARACETAM
     Dosage: DOSE ADJUSTMENT
     Dates: start: 2024, end: 2024
  3. BRIVARACETAM [Suspect]
     Active Substance: BRIVARACETAM
     Dosage: DOSE ADJUSTMENT
     Dates: start: 20240627
  4. FELBAMATE [Concomitant]
     Active Substance: FELBAMATE
     Indication: Seizure
     Dosage: 600 MILLIGRAM, 3X/DAY (TID)
  5. BALSALAZIDE DISODIUM [Concomitant]
     Active Substance: BALSALAZIDE DISODIUM
     Indication: Gastrointestinal disorder
     Dosage: 750 MILLIGRAM, AS NEEDED (PRN)

REACTIONS (6)
  - Seizure [Recovered/Resolved]
  - Generalised tonic-clonic seizure [Recovered/Resolved]
  - Partial seizures [Recovered/Resolved]
  - Stress [Unknown]
  - Confusional state [Unknown]
  - Incorrect dose administered [Unknown]

NARRATIVE: CASE EVENT DATE: 20240101
